FAERS Safety Report 16131240 (Version 6)
Quarter: 2019Q4

REPORT INFORMATION
  Report Type: Report from Study
  Country: US (occurrence: US)
  Receive Date: 20190328
  Receipt Date: 20191022
  Transmission Date: 20200122
  Serious: Yes (Other)
  Sender: FDA-Public Use
  Company Number: PHHY2018US201286

PATIENT
  Age: 71 Year
  Sex: Male

DRUGS (3)
  1. KYMRIAH [Suspect]
     Active Substance: TISAGENLECLEUCEL
     Indication: DIFFUSE LARGE B-CELL LYMPHOMA
     Dosage: UNK, ONCE/SINGLE
     Route: 041
     Dates: start: 2018
  2. FLUDARABINE [Concomitant]
     Active Substance: FLUDARABINE PHOSPHATE
     Indication: CHEMOTHERAPY
     Route: 065
  3. CYCLOPHOSPHAMIDE. [Concomitant]
     Active Substance: CYCLOPHOSPHAMIDE
     Indication: CHEMOTHERAPY
     Route: 065

REACTIONS (16)
  - Aphasia [Unknown]
  - Diffuse large B-cell lymphoma [Unknown]
  - Malignant neoplasm progression [Unknown]
  - Cytokine release syndrome [Recovered/Resolved]
  - Pyrexia [Unknown]
  - Neurotoxicity [Recovered/Resolved]
  - Neuropathy peripheral [Unknown]
  - White blood cell count decreased [Not Recovered/Not Resolved]
  - Haematocrit decreased [Recovering/Resolving]
  - Cytokine release syndrome [Unknown]
  - Hypoxia [Unknown]
  - Platelet count decreased [Recovering/Resolving]
  - Hypogammaglobulinaemia [Unknown]
  - Lymphocyte count decreased [Recovered/Resolved]
  - Out of specification test results [Unknown]
  - Haemoglobin decreased [Recovering/Resolving]
